FAERS Safety Report 16702169 (Version 1)
Quarter: 2019Q3

REPORT INFORMATION
  Report Type: Spontaneous
  Country: US (occurrence: US)
  Receive Date: 20190813
  Receipt Date: 20190813
  Transmission Date: 20191004
  Serious: Yes (Other)
  Sender: FDA-Public Use
  Company Number: None

PATIENT
  Age: 52 Year
  Sex: Female
  Weight: 72 kg

DRUGS (1)
  1. DURAGESIC [Suspect]
     Active Substance: FENTANYL
     Indication: PAIN
     Dosage: ?          OTHER STRENGTH:MCG/H;QUANTITY:2 PATCH(ES);OTHER FREQUENCY:72 HRS;?
     Route: 061
     Dates: start: 20100801

REACTIONS (2)
  - Device ineffective [None]
  - Device adhesion issue [None]

NARRATIVE: CASE EVENT DATE: 20190813
